FAERS Safety Report 16205317 (Version 4)
Quarter: 2019Q3

REPORT INFORMATION
  Report Type: Spontaneous
  Country: US (occurrence: US)
  Receive Date: 20190417
  Receipt Date: 20190920
  Transmission Date: 20191004
  Serious: Yes (Other)
  Sender: FDA-Public Use
  Company Number: US-ELI_LILLY_AND_COMPANY-US201904008509

PATIENT
  Sex: Female

DRUGS (20)
  1. HUMULIN R U-500 [Suspect]
     Active Substance: INSULIN HUMAN
     Dosage: 30 INTERNATIONAL UNIT, AFTERNOON
     Route: 065
  2. HUMULIN R U-500 [Suspect]
     Active Substance: INSULIN HUMAN
     Dosage: 30 INTERNATIONAL UNIT, DAILY (NOON)
     Route: 065
  3. VICTOZA [Suspect]
     Active Substance: LIRAGLUTIDE
     Indication: DIABETES MELLITUS
     Dosage: UNK UNK, UNKNOWN
     Route: 065
     Dates: end: 201908
  4. HUMULIN R [Suspect]
     Active Substance: INSULIN HUMAN
     Indication: TYPE 2 DIABETES MELLITUS
     Dosage: 30 INTERNATIONAL UNIT, EACH MORNING
     Route: 065
     Dates: start: 2009
  5. HUMULIN R [Suspect]
     Active Substance: INSULIN HUMAN
     Dosage: 17 INTERNATIONAL UNIT, NOON
     Route: 065
     Dates: start: 2009
  6. HUMULIN R U-500 [Suspect]
     Active Substance: INSULIN HUMAN
     Indication: TYPE 2 DIABETES MELLITUS
     Dosage: 45 INTERNATIONAL UNIT, EACH MORNING
     Route: 065
     Dates: start: 2017, end: 20190421
  7. HUMULIN R [Suspect]
     Active Substance: INSULIN HUMAN
     Dosage: 17 INTERNATIONAL UNIT, NOON
     Route: 065
     Dates: start: 20190421
  8. HUMULIN R [Suspect]
     Active Substance: INSULIN HUMAN
     Dosage: 12 INTERNATIONAL UNIT, EACH EVENING
     Route: 065
     Dates: start: 20190421
  9. HUMULIN R U-500 [Suspect]
     Active Substance: INSULIN HUMAN
     Dosage: 30 INTERNATIONAL UNIT, EACH EVENING
     Route: 065
     Dates: start: 2017, end: 20190421
  10. HUMULIN R [Suspect]
     Active Substance: INSULIN HUMAN
     Dosage: 12 INTERNATIONAL UNIT, EACH EVENING
     Route: 065
     Dates: start: 2009
  11. HUMULIN R U-500 [Suspect]
     Active Substance: INSULIN HUMAN
     Dosage: 45 INTERNATIONAL UNIT, EACH MORNING
     Route: 065
     Dates: start: 2017
  12. HUMULIN R U-500 [Suspect]
     Active Substance: INSULIN HUMAN
     Dosage: 20 INTERNATIONAL UNIT, EACH NIGHT
     Route: 065
     Dates: start: 2017
  13. HUMULIN R U-500 [Suspect]
     Active Substance: INSULIN HUMAN
     Dosage: 35 INTERNATIONAL UNIT, AFTERNOON
     Route: 065
     Dates: start: 2017, end: 20190421
  14. HUMULIN R U-500 [Suspect]
     Active Substance: INSULIN HUMAN
     Dosage: 35 INTERNATIONAL UNIT, AFTERNOON
     Route: 065
     Dates: start: 2017, end: 20190421
  15. HUMULIN R U-500 [Suspect]
     Active Substance: INSULIN HUMAN
     Dosage: 50 INTERNATIONAL UNIT, EACH MORNING
     Route: 065
  16. HUMULIN R [Suspect]
     Active Substance: INSULIN HUMAN
     Dosage: 30 INTERNATIONAL UNIT, EACH MORNING
     Route: 065
     Dates: start: 20190421
  17. HUMULIN R [Suspect]
     Active Substance: INSULIN HUMAN
     Dosage: UNK
  18. HUMULIN R U-500 [Suspect]
     Active Substance: INSULIN HUMAN
     Dosage: 30 INTERNATIONAL UNIT, EACH EVENING
     Route: 065
     Dates: start: 2017, end: 20190421
  19. HUMULIN R U-500 [Suspect]
     Active Substance: INSULIN HUMAN
     Dosage: 45 INTERNATIONAL UNIT, EACH MORNING
     Route: 065
  20. HUMULIN R U-500 [Suspect]
     Active Substance: INSULIN HUMAN
     Dosage: 20 INTERNATIONAL UNIT, DAILY (AT NIGHT)
     Route: 065

REACTIONS (10)
  - Somnolence [Unknown]
  - Renal impairment [Not Recovered/Not Resolved]
  - Blood glucose increased [Not Recovered/Not Resolved]
  - Blood glucose decreased [Unknown]
  - Wrong technique in product usage process [Unknown]
  - Fatigue [Unknown]
  - Drug ineffective [Unknown]
  - Hypokinesia [Not Recovered/Not Resolved]
  - Pyrexia [Unknown]
  - Asthenia [Unknown]

NARRATIVE: CASE EVENT DATE: 20190421
